FAERS Safety Report 13000563 (Version 2)
Quarter: 2016Q4

REPORT INFORMATION
  Report Type: Spontaneous
  Country: NL (occurrence: NL)
  Receive Date: 20161206
  Receipt Date: 20161206
  Transmission Date: 20170207
  Serious: Yes (Hospitalization)
  Sender: FDA-Public Use
  Company Number: NL-ASTRAZENECA-2016SF26392

PATIENT
  Age: 27705 Day
  Sex: Male
  Weight: 85 kg

DRUGS (4)
  1. ACLASTA [Interacting]
     Active Substance: ZOLEDRONIC ACID
     Indication: OSTEOPOROSIS
     Dosage: 0.05 MG/ML FLACON 100ML, YEARLY
     Route: 042
     Dates: start: 20150325
  2. ASCAL BRISPER [Concomitant]
     Active Substance: CARBASPIRIN
     Route: 048
  3. OMEPRAZOL [Suspect]
     Active Substance: OMEPRAZOLE
     Indication: GASTRIC DISORDER
     Route: 048
     Dates: start: 20140301
  4. DICLOFENAC NATRIUM PCH TABLET MSR 50MG [Interacting]
     Active Substance: DICLOFENAC SODIUM
     Indication: BACK PAIN
     Dosage: TWO TIMES A DAY
     Route: 048
     Dates: start: 20150301

REACTIONS (2)
  - Drug interaction [Not Recovered/Not Resolved]
  - Renal failure [Not Recovered/Not Resolved]

NARRATIVE: CASE EVENT DATE: 20150601
